FAERS Safety Report 25628583 (Version 1)
Quarter: 2025Q3

REPORT INFORMATION
  Report Type: Report from Study
  Country: BR (occurrence: BR)
  Receive Date: 20250731
  Receipt Date: 20250731
  Transmission Date: 20251021
  Serious: Yes (Hospitalization, Other)
  Sender: JOHNSON AND JOHNSON
  Company Number: BR-JNJFOC-20240705942

PATIENT
  Age: 48 Year
  Sex: Female
  Weight: 73 kg

DRUGS (6)
  1. GOLIMUMAB [Suspect]
     Active Substance: GOLIMUMAB
     Indication: Ankylosing spondylitis
     Dosage: 50.00 MG / 0.50 ML
     Route: 058
  2. GOLIMUMAB [Suspect]
     Active Substance: GOLIMUMAB
  3. GOLIMUMAB [Suspect]
     Active Substance: GOLIMUMAB
     Indication: Ankylosing spondylitis
     Route: 058
     Dates: start: 202401, end: 202502
  4. GOLIMUMAB [Suspect]
     Active Substance: GOLIMUMAB
  5. GOLIMUMAB [Suspect]
     Active Substance: GOLIMUMAB
  6. BETAMETHASONE [Suspect]
     Active Substance: BETAMETHASONE
     Route: 065

REACTIONS (15)
  - Hypertension [Not Recovered/Not Resolved]
  - Urinary tract infection [Unknown]
  - Pneumonia [Unknown]
  - Kidney infection [Unknown]
  - Rheumatoid arthritis [Unknown]
  - Dizziness [Unknown]
  - Decreased immune responsiveness [Unknown]
  - Nausea [Recovered/Resolved]
  - Headache [Recovered/Resolved]
  - Arthropathy [Unknown]
  - Wrong technique in product usage process [Unknown]
  - Fibromyalgia [Unknown]
  - Visual impairment [Unknown]
  - Vomiting [Recovered/Resolved]
  - Drug ineffective [Unknown]
